FAERS Safety Report 12108993 (Version 2)
Quarter: 2020Q4

REPORT INFORMATION
  Report Type: Report from Study
  Country: DE (occurrence: JP)
  Receive Date: 20160224
  Receipt Date: 20201125
  Transmission Date: 20210113
  Serious: Yes (Other)
  Sender: FDA-Public Use
  Company Number: JP-BRISTOL-MYERS SQUIBB COMPANY-BMS-2015-027891

PATIENT
  Age: 68 Year
  Sex: Male

DRUGS (7)
  1. CARBOPLATIN. [Suspect]
     Active Substance: CARBOPLATIN
     Indication: SQUAMOUS CELL CARCINOMA OF HEAD AND NECK
     Dosage: UNK, UNKNOWN
     Route: 041
  2. 5-FU [FLUOROURACIL] [Suspect]
     Active Substance: FLUOROURACIL
     Dosage: UNK, UNKNOWN
     Route: 041
  3. 5-FU [FLUOROURACIL] [Suspect]
     Active Substance: FLUOROURACIL
     Indication: SQUAMOUS CELL CARCINOMA OF HEAD AND NECK
     Dosage: UNK UNK, UNKNOWN
     Route: 041
  4. PACLITAXEL. [Suspect]
     Active Substance: PACLITAXEL
     Indication: SQUAMOUS CELL CARCINOMA OF HEAD AND NECK
     Dosage: UNK, UNKNOWN
     Route: 041
  5. CETUXIMAB. [Suspect]
     Active Substance: CETUXIMAB
     Dosage: UNK, UNKNOWN
     Route: 041
     Dates: end: 20140529
  6. CARBOPLATIN. [Suspect]
     Active Substance: CARBOPLATIN
     Dosage: UNK, UNKNOWN
     Route: 041
  7. CETUXIMAB. [Suspect]
     Active Substance: CETUXIMAB
     Indication: SQUAMOUS CELL CARCINOMA OF HEAD AND NECK
     Dosage: UNK, UNKNOWN
     Route: 041
     Dates: start: 20130930, end: 20140306

REACTIONS (12)
  - Alanine aminotransferase increased [Recovered/Resolved]
  - Anaemia [Recovering/Resolving]
  - Neutrophil count decreased [Recovered/Resolved]
  - Aspartate aminotransferase increased [Recovered/Resolved]
  - Hypocalcaemia [Recovered/Resolved]
  - Syncope [Recovering/Resolving]
  - Nausea [Recovered/Resolved]
  - Dermatitis acneiform [Not Recovered/Not Resolved]
  - Decreased appetite [Recovered/Resolved]
  - Dry skin [Not Recovered/Not Resolved]
  - White blood cell count decreased [Recovered/Resolved]
  - Blood lactate dehydrogenase increased [Recovered/Resolved]

NARRATIVE: CASE EVENT DATE: 20131001
